FAERS Safety Report 13647427 (Version 2)
Quarter: 2017Q2

REPORT INFORMATION
  Report Type: Spontaneous
  Country: US (occurrence: US)
  Receive Date: 20170613
  Receipt Date: 20170622
  Transmission Date: 20170830
  Serious: Yes (Other)
  Sender: FDA-Public Use
  Company Number: US-AMGEN-USASP2017087018

PATIENT
  Sex: Female
  Weight: 126.98 kg

DRUGS (2)
  1. NPLATE [Suspect]
     Active Substance: ROMIPLOSTIM
     Indication: PRODUCT USED FOR UNKNOWN INDICATION
     Dosage: UNK
     Route: 065
  2. NPLATE [Suspect]
     Active Substance: ROMIPLOSTIM
     Dosage: 400 MUG, UNK
     Route: 065

REACTIONS (5)
  - Rectal haemorrhage [Unknown]
  - Haemorrhage [Unknown]
  - Epistaxis [Unknown]
  - Platelet count abnormal [Unknown]
  - Platelet count decreased [Unknown]
